FAERS Safety Report 5878971-6 (Version None)
Quarter: 2008Q3

REPORT INFORMATION
  Report Type: 
  Country: None (occurrence: None)
  Receive Date: 20080912
  Receipt Date: 20080908
  Transmission Date: 20090109
  Serious: Yes (Other)
  Sender: FDA-Public Use
  Company Number: ZA-BRISTOL-MYERS SQUIBB COMPANY-14328298

PATIENT
  Age: 54 Year
  Sex: Female

DRUGS (4)
  1. EFAVIRENZ [Suspect]
     Indication: HIV INFECTION
     Dates: start: 20060101
  2. STAVUDINE [Suspect]
     Indication: HIV INFECTION
     Dates: start: 20060101
  3. LAMIVUDINE [Suspect]
     Indication: HIV INFECTION
     Dates: start: 20060101
  4. CO-TRIMOXAZOLE [Suspect]
     Dates: start: 20060101

REACTIONS (5)
  - BREAST ABSCESS [None]
  - HERPES ZOSTER [None]
  - IMMUNE RECONSTITUTION SYNDROME [None]
  - ORAL CANDIDIASIS [None]
  - PULMONARY TUBERCULOSIS [None]
